FAERS Safety Report 24828422 (Version 3)
Quarter: 2025Q1

REPORT INFORMATION
  Report Type: Spontaneous
  Country: US (occurrence: US)
  Receive Date: 20250110
  Receipt Date: 20250318
  Transmission Date: 20250408
  Serious: No
  Sender: ELI LILLY AND COMPANY
  Company Number: US-ELI_LILLY_AND_COMPANY-US202501003433

PATIENT
  Age: 72 Year
  Sex: Female

DRUGS (5)
  1. JAYPIRCA [Suspect]
     Active Substance: PIRTOBRUTINIB
     Indication: Mantle cell lymphoma
     Dosage: 50 MG, DAILY
     Route: 048
     Dates: start: 20241228
  2. JAYPIRCA [Suspect]
     Active Substance: PIRTOBRUTINIB
     Indication: Leukaemia
     Route: 048
     Dates: end: 20250201
  3. JAYPIRCA [Suspect]
     Active Substance: PIRTOBRUTINIB
     Dosage: 50 MG, BID
     Route: 048
     Dates: start: 20250207
  4. PREDNISONE [Concomitant]
     Active Substance: PREDNISONE
     Indication: Product used for unknown indication
  5. CEFIXIME [Concomitant]
     Active Substance: CEFIXIME
     Indication: Muscle relaxant therapy
     Dosage: 5 MG, QID

REACTIONS (11)
  - Anxiety [Unknown]
  - Tremor [Unknown]
  - Erythema [Not Recovered/Not Resolved]
  - Illness [Unknown]
  - Heart rate increased [Unknown]
  - Nervousness [Unknown]
  - Fear [Unknown]
  - Blood pressure increased [Unknown]
  - Weight decreased [Unknown]
  - Cough [Not Recovered/Not Resolved]
  - Fatigue [Not Recovered/Not Resolved]
